FAERS Safety Report 21047742 (Version 3)
Quarter: 2023Q1

REPORT INFORMATION
  Report Type: Report from Study
  Country: ZA (occurrence: ZA)
  Receive Date: 20220706
  Receipt Date: 20230306
  Transmission Date: 20230417
  Serious: Yes (Death)
  Sender: FDA-Public Use
  Company Number: ZA-KARYOPHARM-2022KPT000711

PATIENT
  Age: 65 Year
  Sex: Female

DRUGS (6)
  1. SELINEXOR [Suspect]
     Active Substance: SELINEXOR
     Indication: Plasma cell myeloma
     Dosage: 80 MG, 2X/WEEK DAYS 1 AND 3
     Route: 048
     Dates: start: 20220525
  2. SELINEXOR [Suspect]
     Active Substance: SELINEXOR
     Dosage: 80 MG, WEEKLY
     Route: 048
     Dates: start: 202207
  3. DEXAMETHASONE [Concomitant]
     Active Substance: DEXAMETHASONE
     Indication: Plasma cell myeloma
     Dosage: 20 MG, 2X/WEEK DAYS 1 AND 3
     Dates: start: 20220525
  4. APREPITANT [Concomitant]
     Active Substance: APREPITANT
  5. POMALIDOMIDE [Concomitant]
     Active Substance: POMALIDOMIDE
     Indication: Plasma cell myeloma
     Dosage: 4 MG, WEEKLY FOR 3 WEEKS
     Dates: start: 202207
  6. IXAZOMIB [Concomitant]
     Active Substance: IXAZOMIB
     Dosage: 4 MG, WEEKLY FOR 3 WEEKS

REACTIONS (4)
  - Plasma cell myeloma [Fatal]
  - Cytopenia [Not Recovered/Not Resolved]
  - Nausea [Recovering/Resolving]
  - Fatigue [Recovering/Resolving]

NARRATIVE: CASE EVENT DATE: 20220501
